FAERS Safety Report 8353971 (Version 6)
Quarter: 2013Q4

REPORT INFORMATION
  Report Type: Report from Study
  Country: JP (occurrence: JP)
  Receive Date: 20120112
  Receipt Date: 20131108
  Transmission Date: 20140711
  Serious: Yes (Hospitalization, Other)
  Sender: FDA-Public Use
  Company Number: JP-009507513-2012SP001248

PATIENT
  Age: 66 Year
  Sex: Male
  Weight: 64 kg

DRUGS (10)
  1. PEGINTERFERON ALFA-2B [Suspect]
     Indication: HEPATITIS C
     Dosage: 1.5 ?G/KG, QW
     Route: 058
     Dates: start: 20111221, end: 20111221
  2. REBETOL [Suspect]
     Indication: HEPATITIS C
     Dosage: 800 MG, QD
     Route: 048
     Dates: start: 20111221, end: 20111223
  3. TELAVIC [Suspect]
     Indication: HEPATITIS C
     Route: 048
     Dates: start: 20111221, end: 20111223
  4. INVESTIGATIONAL DRUG (UNSPECIFIED) [Suspect]
     Indication: HEPATITIS C
     Dosage: 2250 MG, QD
     Route: 048
     Dates: start: 20111221, end: 20111223
  5. BAYASPIRIN [Concomitant]
     Indication: ATRIAL FIBRILLATION
     Dosage: 100 MG, QD
     Route: 048
     Dates: end: 20111223
  6. PREDONINE [Concomitant]
     Indication: URTICARIA
     Dosage: FORMULATION POR
     Route: 048
     Dates: end: 20111223
  7. PREDONINE [Concomitant]
     Indication: PROPHYLAXIS
  8. GASTER D [Concomitant]
     Indication: GASTRIC ULCER
     Dosage: FORMULATION POR
     Route: 048
     Dates: end: 20111223
  9. GASTER D [Concomitant]
     Indication: PROPHYLAXIS
  10. VASOLAN [Concomitant]
     Indication: ATRIAL FIBRILLATION
     Dosage: 120 MG, QD
     Route: 048
     Dates: end: 20111223

REACTIONS (4)
  - Acidosis [Recovering/Resolving]
  - Mesenteric vein thrombosis [Unknown]
  - Renal impairment [Unknown]
  - Hepatic function abnormal [Unknown]
